FAERS Safety Report 25149523 (Version 1)
Quarter: 2025Q2

REPORT INFORMATION
  Report Type: Spontaneous
  Country: US (occurrence: None)
  Receive Date: 20250401
  Receipt Date: 20250401
  Transmission Date: 20250716
  Serious: Yes (Hospitalization)
  Sender: FDA-CTU
  Company Number: None

PATIENT
  Age: 68 Year
  Sex: Female
  Weight: 101.6 kg

DRUGS (16)
  1. INGREZZA [Suspect]
     Active Substance: VALBENAZINE DITOSYLATE
     Indication: Tardive dyskinesia
     Dosage: FREQUENCY : DAILY;?
     Route: 048
     Dates: start: 20240703, end: 20250318
  2. CARVEDILOL [Concomitant]
     Active Substance: CARVEDILOL
  3. CLONAZEPAM [Concomitant]
     Active Substance: CLONAZEPAM
  4. DOCUSATE [Concomitant]
     Active Substance: DOCUSATE
  5. GABAPENTIN [Concomitant]
     Active Substance: GABAPENTIN
  6. IBUPROFEN [Concomitant]
     Active Substance: IBUPROFEN
  7. JANUVIA [Concomitant]
     Active Substance: SITAGLIPTIN PHOSPHATE
  8. JARDIANCE [Concomitant]
     Active Substance: EMPAGLIFLOZIN
  9. LEVOTHYROXINE [Concomitant]
     Active Substance: LEVOTHYROXINE
  10. LUBIPROSTONE [Concomitant]
     Active Substance: LUBIPROSTONE
  11. MELOXICAM [Concomitant]
     Active Substance: MELOXICAM
  12. MONTELUKAST [Concomitant]
     Active Substance: MONTELUKAST
  13. OMEPRAZOLE [Concomitant]
     Active Substance: OMEPRAZOLE
  14. POTASSIUM [Concomitant]
     Active Substance: POTASSIUM
  15. ROSUVASTATIN [Concomitant]
     Active Substance: ROSUVASTATIN
  16. VITAMIN B12 [Concomitant]
     Active Substance: CYANOCOBALAMIN

REACTIONS (3)
  - Pneumonia [None]
  - Aphasia [None]
  - Dysphagia [None]

NARRATIVE: CASE EVENT DATE: 20250318
